FAERS Safety Report 9464299 (Version 3)
Quarter: 2014Q1

REPORT INFORMATION
  Report Type: Spontaneous
  Country: FR (occurrence: FR)
  Receive Date: 20130819
  Receipt Date: 20140131
  Transmission Date: 20141002
  Serious: Yes (Other)
  Sender: FDA-Public Use
  Company Number: ALCN2013FR004143

PATIENT
  Age: 5 Year
  Sex: Male
  Weight: 15.6 kg

DRUGS (2)
  1. ATROPINE SULFATE [Suspect]
     Indication: OPHTHALMOLOGICAL EXAMINATION
     Dosage: 4 GTT, ONCE/SINGLE
     Route: 047
     Dates: start: 20130723, end: 20130723
  2. ATROPINE SULFATE [Suspect]
     Indication: OFF LABEL USE

REACTIONS (2)
  - Overdose [Recovered/Resolved]
  - Anticholinergic syndrome [Recovered/Resolved]
